FAERS Safety Report 23587797 (Version 1)
Quarter: 2024Q1

REPORT INFORMATION
  Report Type: Spontaneous
  Country: FR (occurrence: FR)
  Receive Date: 20240301
  Receipt Date: 20240301
  Transmission Date: 20240409
  Serious: Yes (Hospitalization, Other)
  Sender: FDA-Public Use
  Company Number: None

PATIENT
  Age: 53 Year
  Sex: Female
  Weight: 65 kg

DRUGS (5)
  1. EMEND [Suspect]
     Active Substance: APREPITANT
     Indication: Prophylaxis of nausea and vomiting
     Dosage: 125 MILLIGRAM
     Route: 048
     Dates: start: 20240205
  2. ONDANSETRON [Suspect]
     Active Substance: ONDANSETRON
     Indication: Breast cancer
     Dosage: 8 MILLIGRAM, STRENGTH: 8MG/4ML
     Route: 042
     Dates: start: 20240205, end: 20240205
  3. METHYLPREDNISOLONE [Suspect]
     Active Substance: METHYLPREDNISOLONE
     Indication: Breast cancer
     Dosage: 80 MILLIGRAM
     Route: 042
     Dates: start: 20240205, end: 20240205
  4. CYCLOPHOSPHAMIDE [Suspect]
     Active Substance: CYCLOPHOSPHAMIDE
     Indication: Breast cancer
     Dosage: 1040 MILLIGRAM
     Route: 042
     Dates: start: 20240205, end: 20240205
  5. EPIRUBICIN [Suspect]
     Active Substance: EPIRUBICIN
     Indication: Breast cancer
     Dosage: 172 MILLIGRAM
     Route: 042
     Dates: start: 20240205, end: 20240205

REACTIONS (1)
  - Seizure [Recovered/Resolved]

NARRATIVE: CASE EVENT DATE: 20240206
